FAERS Safety Report 11512901 (Version 1)
Quarter: 2015Q3

REPORT INFORMATION
  Report Type: Spontaneous
  Country: US (occurrence: None)
  Receive Date: 20150915
  Receipt Date: 20150915
  Transmission Date: 20151125
  Serious: Yes (Disabling)
  Sender: FDA-Public Use
  Company Number: None

PATIENT
  Age: 33 Year
  Sex: Female
  Weight: 99.79 kg

DRUGS (4)
  1. GEODON [Suspect]
     Active Substance: ZIPRASIDONE HYDROCHLORIDE\ZIPRASIDONE MESYLATE
     Indication: FATIGUE
     Route: 048
     Dates: start: 20150811, end: 20150907
  2. VITAMIN D [Concomitant]
     Active Substance: CHOLECALCIFEROL
  3. VITAMIN B12 [Concomitant]
     Active Substance: CYANOCOBALAMIN
  4. WELLBUTRIN [Concomitant]
     Active Substance: BUPROPION HYDROCHLORIDE

REACTIONS (5)
  - Fatigue [None]
  - Nightmare [None]
  - Drug withdrawal syndrome [None]
  - Insomnia [None]
  - Electric shock [None]

NARRATIVE: CASE EVENT DATE: 20150907
